FAERS Safety Report 8126272-8 (Version None)
Quarter: 2012Q1

REPORT INFORMATION
  Report Type: 
  Country: None (occurrence: None)
  Receive Date: 20120209
  Receipt Date: 20120207
  Transmission Date: 20120608
  Serious: No
  Sender: FDA-Public Use
  Company Number: US-BAYER-2012-013139

PATIENT
  Age: 74 Year
  Sex: Male
  Weight: 107 kg

DRUGS (7)
  1. ACETYLSALICYLIC ACID SRT [Concomitant]
     Indication: ISCHAEMIC HEART DISEASE PROPHYLAXIS
     Dosage: 1 UNK, UNK
     Route: 048
  2. CARVEDILOL [Concomitant]
     Dosage: UNK
  3. PRAVASTATIN [Concomitant]
     Dosage: UNK
  4. LEVOTHYROXINE SODIUM [Concomitant]
     Dosage: UNK
  5. FLECAINIDE [Concomitant]
     Dosage: UNK
  6. ALEVE (CAPLET) [Suspect]
     Indication: ANALGESIC THERAPY
     Dosage: 1 UNK, UNK
     Route: 048
     Dates: start: 20120202, end: 20120207
  7. LISINOPRIL [Concomitant]
     Dosage: UNK

REACTIONS (1)
  - RASH MACULAR [None]
